FAERS Safety Report 10340121 (Version 2)
Quarter: 2014Q4

REPORT INFORMATION
  Report Type: Spontaneous
  Country: US (occurrence: None)
  Receive Date: 20140722
  Receipt Date: 20141031
  Transmission Date: 20150528
  Serious: Yes (Death, Hospitalization)
  Sender: FDA-Public Use
  Company Number: UNT-2014-003975

PATIENT
  Age: 29 Year
  Sex: Female
  Weight: 61.7 kg

DRUGS (3)
  1. REMODULIN [Suspect]
     Active Substance: TREPROSTINIL
     Indication: PULMONARY ARTERIAL HYPERTENSION
     Dosage: 0.031 UG/KG, CONTINUING, IV DRIP
     Route: 041
     Dates: start: 20130211
  2. LETAIRIS [Concomitant]
     Active Substance: AMBRISENTAN
  3. WARFARIN (WARFARIN) [Concomitant]
     Active Substance: WARFARIN

REACTIONS (4)
  - Memory impairment [None]
  - Respiratory failure [None]
  - Fluid retention [None]
  - Right ventricular failure [None]

NARRATIVE: CASE EVENT DATE: 2014
